FAERS Safety Report 15200093 (Version 1)
Quarter: 2018Q3

REPORT INFORMATION
  Report Type: Spontaneous
  Country: US (occurrence: US)
  Receive Date: 20180726
  Receipt Date: 20180726
  Transmission Date: 20181010
  Serious: Yes (Hospitalization)
  Sender: FDA-Public Use
  Company Number: US-TEVA-2018-US-928914

PATIENT
  Age: 50 Year
  Sex: Female

DRUGS (2)
  1. VALSARTAN W/HYDROCHLOROTHIAZIDE [Suspect]
     Active Substance: HYDROCHLOROTHIAZIDE\VALSARTAN
     Indication: HYPERTENSION
     Dosage: 320/25MG
     Route: 065
     Dates: start: 20170511
  2. ALPRAZOLAM. [Suspect]
     Active Substance: ALPRAZOLAM
     Route: 065

REACTIONS (2)
  - Dyspnoea [Unknown]
  - Urticaria [Unknown]

NARRATIVE: CASE EVENT DATE: 201804
